FAERS Safety Report 6112291-X (Version None)
Quarter: 2009Q1

REPORT INFORMATION
  Report Type: 
  Country: None (occurrence: None)
  Receive Date: 20090312
  Receipt Date: 20090302
  Transmission Date: 20090719
  Serious: Yes (Hospitalization)
  Sender: FDA-Public Use
  Company Number: GB-RANBAXY-2009RR-22316

PATIENT
  Sex: Female

DRUGS (3)
  1. CLARITHROMYCIN [Suspect]
     Indication: LOWER RESPIRATORY TRACT INFECTION
     Dosage: UNK
     Route: 048
     Dates: start: 20081201
  2. LEVOTHYROXINE SODIUM [Concomitant]
     Indication: HYPOTHYROIDISM
     Dosage: 250 UG, QD
     Route: 048
     Dates: start: 20080601
  3. ETHINYL ESTRADIOL AND LEVONORGESTREL [Concomitant]
     Dosage: 1 DF, QD
     Route: 048
     Dates: end: 20080101

REACTIONS (2)
  - CHOLANGITIS [None]
  - JAUNDICE CHOLESTATIC [None]
